FAERS Safety Report 8544179-9 (Version None)
Quarter: 2012Q3

REPORT INFORMATION
  Report Type: 
  Country: None (occurrence: None)
  Receive Date: 20120727
  Receipt Date: 20120717
  Transmission Date: 20120928
  Serious: Yes (Hospitalization)
  Sender: FDA-Public Use
  Company Number: FR-FRI-1000037333

PATIENT
  Sex: Male

DRUGS (11)
  1. ASPIRIN [Concomitant]
     Dates: start: 20110201
  2. RAMIPRIL [Concomitant]
     Dates: start: 20120312
  3. PRAVASTATIN [Suspect]
     Dosage: 40 MG
     Route: 048
     Dates: start: 20050101, end: 20120607
  4. ALLOPURINOL [Suspect]
     Route: 048
     Dates: start: 20050101, end: 20120601
  5. AMIODARONE HCL [Concomitant]
     Dates: start: 20030101, end: 20120101
  6. PREVISCAN [Concomitant]
     Dates: start: 20030101
  7. NEBIVOLOL [Suspect]
     Dosage: 5 MG
     Route: 048
     Dates: start: 20110201, end: 20120607
  8. FUROSEMIDE [Concomitant]
  9. AMLODIPINE [Concomitant]
     Dates: start: 20050101, end: 20120301
  10. ALFUZOSIN HYDROCHLORIDE [Concomitant]
  11. ALBUTEROL SULATE [Concomitant]

REACTIONS (1)
  - PLEURAL EFFUSION [None]
